FAERS Safety Report 5423417-5 (Version None)
Quarter: 2007Q3

REPORT INFORMATION
  Report Type: 
  Country: None (occurrence: None)
  Receive Date: 20070823
  Receipt Date: 20070814
  Transmission Date: 20080115
  Serious: Yes (Other)
  Sender: FDA-Public Use
  Company Number: US-JNJFOC-20070802595

PATIENT
  Sex: Female

DRUGS (9)
  1. REMICADE [Suspect]
     Indication: CROHN'S DISEASE
     Route: 042
  2. CALCIUM [Concomitant]
  3. M.V.I. [Concomitant]
  4. ASPIRIN [Concomitant]
  5. LOMOTIL [Concomitant]
  6. FOLIC ACID [Concomitant]
  7. 6-MP [Concomitant]
  8. LEXAPRO [Concomitant]
  9. ACTONEL [Concomitant]

REACTIONS (1)
  - LUNG NEOPLASM [None]
